FAERS Safety Report 5036025-5 (Version None)
Quarter: 2006Q2

REPORT INFORMATION
  Report Type: 
  Country: None (occurrence: None)
  Receive Date: 20060601
  Receipt Date: 20060418
  Transmission Date: 20061013
  Serious: Yes (Hospitalization)
  Sender: FDA-Public Use
  Company Number: US200604003260

PATIENT
  Age: 42 Year
  Sex: Female

DRUGS (6)
  1. CYMBALTA [Suspect]
     Dosage: 60 MG, DAILY (1/D)
     Dates: start: 20060101, end: 20060101
  2. TOPAMX /AUS/ (TOPIRAMATE) [Concomitant]
  3. WELLBUTRIN [Concomitant]
  4. TRILEPTAL [Concomitant]
  5. VICODIN [Concomitant]
  6. ANTIBIOTICS [Concomitant]

REACTIONS (7)
  - APHTHOUS STOMATITIS [None]
  - DRY MOUTH [None]
  - RESTLESS LEGS SYNDROME [None]
  - RESTLESSNESS [None]
  - STEVENS-JOHNSON SYNDROME [None]
  - TREMOR [None]
  - URINARY HESITATION [None]
